FAERS Safety Report 14967845 (Version 5)
Quarter: 2019Q2

REPORT INFORMATION
  Report Type: Spontaneous
  Country: US (occurrence: US)
  Receive Date: 20180604
  Receipt Date: 20190530
  Transmission Date: 20190711
  Serious: Yes (Hospitalization, Other)
  Sender: FDA-Public Use
  Company Number: US-PFIZER INC-2018223318

PATIENT
  Age: 71 Year
  Sex: Female
  Weight: 97.98 kg

DRUGS (7)
  1. LYRICA [Suspect]
     Active Substance: PREGABALIN
     Indication: FIBROMYALGIA
     Dosage: 200 MG, THRICE DAILY
     Route: 048
     Dates: end: 201805
  2. TERAZOSIN [Concomitant]
     Active Substance: TERAZOSIN\TERAZOSIN HYDROCHLORIDE
     Indication: BLOOD PRESSURE ABNORMAL
     Dosage: 2 MG, ONCE DAILY (AT BEDTIME)
     Route: 048
  3. VERAPAMIL [Concomitant]
     Active Substance: VERAPAMIL HYDROCHLORIDE
     Indication: HEART RATE IRREGULAR
     Dosage: 240 MG, DAILY
     Route: 048
  4. SYMBICORT [Concomitant]
     Active Substance: BUDESONIDE\FORMOTEROL FUMARATE DIHYDRATE
     Indication: ASTHMA
     Dosage: UNK, TWICE DAILY (2 PUFFS, TWICE DAILY)
     Route: 055
  5. LYRICA [Suspect]
     Active Substance: PREGABALIN
     Dosage: 200 MG, THRICE DAILY
     Route: 048
  6. LOSARTAN. [Concomitant]
     Active Substance: LOSARTAN
     Indication: BLOOD PRESSURE ABNORMAL
     Dosage: 1 DF, DAILY
     Route: 048
  7. LYRICA [Suspect]
     Active Substance: PREGABALIN
     Indication: PARAESTHESIA
     Dosage: 200 MG, THRICE DAILY
     Route: 048
     Dates: start: 2012

REACTIONS (6)
  - Drug withdrawal syndrome [Recovered/Resolved]
  - Neck pain [Unknown]
  - Muscle spasms [Recovered/Resolved]
  - Upper limb fracture [Unknown]
  - Rotator cuff syndrome [Unknown]
  - Myalgia [Recovered/Resolved]

NARRATIVE: CASE EVENT DATE: 2018
